FAERS Safety Report 24449106 (Version 1)
Quarter: 2024Q4

REPORT INFORMATION
  Report Type: Spontaneous
  Country: IN (occurrence: IN)
  Receive Date: 20241017
  Receipt Date: 20241017
  Transmission Date: 20250114
  Serious: Yes (Other)
  Sender: HETERO
  Company Number: IN-HETERO-HET2024IN03667

PATIENT
  Age: 20 Year
  Sex: Male

DRUGS (1)
  1. LEVETIRACETAM [Suspect]
     Active Substance: LEVETIRACETAM
     Indication: Partial seizures
     Dosage: 1000 MILLIGRAM, QD
     Route: 065

REACTIONS (1)
  - Parkinsonism [Recovered/Resolved]
